FAERS Safety Report 8157584-X (Version None)
Quarter: 2012Q1

REPORT INFORMATION
  Report Type: 
  Country: None (occurrence: None)
  Receive Date: 20120222
  Receipt Date: 20110718
  Transmission Date: 20120608
  Serious: No
  Sender: FDA-Public Use
  Company Number: US-ASTRAZENECA-2011SE42880

PATIENT

DRUGS (8)
  1. CELEXA [Concomitant]
  2. ATENOLOL [Suspect]
     Route: 048
     Dates: end: 20110427
  3. LOVASTATIN [Concomitant]
  4. ENALAPRIL MALEATE [Concomitant]
  5. KLONOPIN [Concomitant]
  6. FLEXERIL [Concomitant]
  7. HYDROCHLOROTHIAZIDE [Concomitant]
  8. IBUPROFEN TABLETS [Concomitant]

REACTIONS (1)
  - ADVERSE EVENT [None]
